FAERS Safety Report 9839450 (Version 2)
Quarter: 2014Q1

REPORT INFORMATION
  Report Type: Report from Study
  Country: US (occurrence: US)
  Receive Date: 20140124
  Receipt Date: 20140203
  Transmission Date: 20141002
  Serious: Yes (Hospitalization)
  Sender: FDA-Public Use
  Company Number: US-009507513-1401USA009639

PATIENT
  Age: 53 Year
  Sex: Male
  Weight: 62.59 kg

DRUGS (20)
  1. BOCEPREVIR [Suspect]
     Indication: HIV INFECTION
     Dosage: 2400 MG, TID
     Route: 048
     Dates: start: 20131108, end: 20140115
  2. BOCEPREVIR [Suspect]
     Indication: HEPATITIS C
  3. REBETOL [Suspect]
     Indication: HIV INFECTION
     Dosage: 1000 MG, BID
     Route: 048
     Dates: start: 20131011, end: 20140115
  4. REBETOL [Suspect]
     Indication: HEPATITIS C
  5. PEGINTERFERON ALFA-2B [Suspect]
     Indication: HIV INFECTION
     Dosage: 96 MICROGRAM, QW
     Route: 058
     Dates: start: 20131011, end: 20140110
  6. PEGINTERFERON ALFA-2B [Suspect]
     Indication: HEPATITIS C
  7. OPANA [Suspect]
     Indication: PAIN
     Dosage: UNK, BID
     Route: 048
     Dates: start: 20131024, end: 20140115
  8. MARINOL (DRONABINOL) [Suspect]
     Indication: WEIGHT DECREASED
     Dosage: UNK UNK, TID
     Route: 048
     Dates: start: 20131024, end: 20140115
  9. ATRIPLA [Concomitant]
     Indication: HIV INFECTION
     Dosage: SCHEDULE OF ADMINISTRATION : HS- AT BED TIME(APPROXIMATE DURATION OF USE  7 YEARS)
     Route: 048
     Dates: start: 200701, end: 20140114
  10. ASPIRIN [Concomitant]
     Indication: ANXIETY
     Dosage: APPROXIMATE DURATION OF USE 7 YEARS,QD
     Route: 048
     Dates: start: 200701, end: 20140115
  11. ASPIRIN [Concomitant]
     Indication: TACHYCARDIA
  12. TOPROL XL TABLETS [Concomitant]
     Indication: ANXIETY
     Dosage: APPROXIAMTE DURATION OF USE(7 YEARS) QD
     Route: 048
     Dates: start: 200701, end: 20140115
  13. TOPROL XL TABLETS [Concomitant]
     Indication: TACHYCARDIA
  14. LIPITOR [Concomitant]
     Indication: DYSLIPIDAEMIA
     Dosage: APPROXIMATE DURATION OF USE(6 YEARS)QD
     Route: 048
     Dates: start: 200801, end: 20140115
  15. LUNESTA [Concomitant]
     Indication: INSOMNIA
     Dosage: APPROXIMATE DURATION OF USE(4 MONTH),QD
     Route: 048
     Dates: start: 201309, end: 20140114
  16. CIALIS [Concomitant]
     Indication: SEXUALLY ACTIVE
     Dosage: APPROXIMATE DURATION OF USE(1 YEAR),PRN
     Route: 048
     Dates: start: 20121231, end: 20131231
  17. LEXAPRO [Concomitant]
     Indication: ANXIETY DISORDER
     Dosage: APPROXIMATE DURATION OF USE:6 MONTHS,QD
     Route: 048
     Dates: start: 201307, end: 20140115
  18. VITAMINS (UNSPECIFIED) [Concomitant]
     Indication: ROUTINE HEALTH MAINTENANCE
     Dosage: APPROXIMATE DURATION OF USE(4 MONTHS),QD
     Route: 048
     Dates: start: 201309, end: 20140115
  19. OMEGA-3 MARINE TRIGLYCERIDES [Concomitant]
     Indication: DYSLIPIDAEMIA
     Dosage: APPROXIMATE DURATION OF USE(6 YEARS),QD
     Route: 048
     Dates: start: 200801, end: 20140115
  20. ASCORBIC ACID [Concomitant]
     Indication: ROUTINE HEALTH MAINTENANCE
     Dosage: APPROXIMATE DURATION OF USE(4 MONTH),QD
     Route: 048
     Dates: start: 201309, end: 20140115

REACTIONS (1)
  - Confusional state [Recovered/Resolved]
